FAERS Safety Report 10540928 (Version 1)
Quarter: 2014Q4

REPORT INFORMATION
  Report Type: Spontaneous
  Country: US (occurrence: None)
  Receive Date: 20141010
  Receipt Date: 20141010
  Transmission Date: 20150529
  Serious: No
  Sender: FDA-Public Use
  Company Number: 163-POMAL-14062495

PATIENT
  Age: 65 Year
  Sex: Male
  Weight: 127.01 kg

DRUGS (12)
  1. DEXAMETHASONE (DEXAMETHASONE) (TABLETS) [Concomitant]
     Active Substance: DEXAMETHASONE
  2. DIOVAN (VALSARTAN) (TABLETS) [Concomitant]
  3. COMPLETE MULTIVITAMIN (MULTIVITAMINS) (TABLETS) [Concomitant]
  4. LEVOTHYROXINE (LEVOTHYROXINE) (TABLETS) [Concomitant]
  5. PANTOPRAZOLE (PANTOPRAZOLE) (UNKNOWN) [Concomitant]
  6. MORPHINE SULFATE (MORPHINE SULFATE) (TABLETS) [Concomitant]
  7. ONDANSETRON HCL (ONDANSETRON HYDROCHLORIDE) (TABLETS) [Concomitant]
  8. ALBUTEROL SULFATE HFA (SALBUTAMOL) (INHALANT) [Concomitant]
  9. POMALYST [Suspect]
     Active Substance: POMALIDOMIDE
     Indication: PLASMA CELL MYELOMA
     Dosage: 4 MG, 21 IN 21 D, PO
     Route: 048
     Dates: start: 20131011
  10. MAGNESIUM OXIDE (MAGNESIUM OXIDE) (TABLETS) [Concomitant]
  11. CRESTOR (ROSUVASTATIN) (TABLETS) [Concomitant]
  12. WARFARIN SODIUM (WARFARIN SODIUM) (TABLETS) [Concomitant]

REACTIONS (3)
  - Weight increased [None]
  - Body height decreased [None]
  - Increased appetite [None]
